FAERS Safety Report 6677798-5 (Version None)
Quarter: 2010Q2

REPORT INFORMATION
  Report Type: 
  Country: None (occurrence: None)
  Receive Date: 20100412
  Receipt Date: 20100408
  Transmission Date: 20101027
  Serious: Yes (Other)
  Sender: FDA-Public Use
  Company Number: FR-SANOFI-AVENTIS-2010SA020128

PATIENT
  Age: 4 Year
  Sex: Male

DRUGS (3)
  1. FASTURTEC [Suspect]
     Route: 042
     Dates: start: 20100303, end: 20100306
  2. GLEEVEC [Suspect]
     Route: 048
     Dates: start: 20100306
  3. KARDEGIC [Concomitant]
     Route: 048
     Dates: start: 20100304

REACTIONS (2)
  - BONE INFARCTION [None]
  - PAIN IN EXTREMITY [None]
